FAERS Safety Report 24215177 (Version 1)
Quarter: 2024Q3

REPORT INFORMATION
  Report Type: Spontaneous
  Country: US (occurrence: US)
  Receive Date: 20240816
  Receipt Date: 20240816
  Transmission Date: 20241016
  Serious: Yes (Other)
  Sender: NOVO NORDISK
  Company Number: US-NOVOPROD-1267538

PATIENT
  Sex: Female

DRUGS (1)
  1. LEVEMIR [Suspect]
     Active Substance: INSULIN DETEMIR
     Indication: Type 2 diabetes mellitus
     Dosage: UNK
     Route: 058
     Dates: start: 2023

REACTIONS (6)
  - Rotator cuff syndrome [Unknown]
  - Fibromyalgia [Unknown]
  - Cognitive disorder [Unknown]
  - Osteoarthritis [Unknown]
  - Injection site mass [Unknown]
  - Injection site bruising [Unknown]
